FAERS Safety Report 8272003-0 (Version None)
Quarter: 2012Q1

REPORT INFORMATION
  Report Type: 
  Country: None (occurrence: None)
  Receive Date: 20120312
  Receipt Date: 20111214
  Transmission Date: 20120608
  Serious: No
  Sender: FDA-Public Use
  Company Number: 2011SP058391

PATIENT
  Sex: Female

DRUGS (3)
  1. ABILIFY [Concomitant]
  2. SAPHRIS [Suspect]
     Indication: PRODUCT USED FOR UNKNOWN INDICATION
     Dosage: SL
     Route: 060
  3. CYMBALTA [Concomitant]

REACTIONS (1)
  - PARKINSONISM [None]
